FAERS Safety Report 9127287 (Version 1)
Quarter: 2013Q1

REPORT INFORMATION
  Report Type: Spontaneous
  Country: US (occurrence: US)
  Receive Date: 20130228
  Receipt Date: 20130228
  Transmission Date: 20140127
  Serious: No
  Sender: FDA-Public Use
  Company Number: US-GLAXOSMITHKLINE-A0966553A

PATIENT
  Sex: Female

DRUGS (14)
  1. LAMOTRIGINE [Suspect]
     Indication: BIPOLAR DISORDER
     Dosage: 5MG PER DAY
     Route: 048
     Dates: start: 2009
  2. FOCALIN [Concomitant]
  3. CYMBALTA [Concomitant]
  4. THYROID MEDICATION [Concomitant]
  5. PREMARIN [Concomitant]
  6. LYRICA [Concomitant]
  7. LOSARTAN POTASSIUM [Concomitant]
  8. ATIVAN [Concomitant]
  9. ATENOLOL [Concomitant]
  10. LOPID [Concomitant]
  11. TRENTAL [Concomitant]
  12. VITAMIN D [Concomitant]
  13. CLARINEX [Concomitant]
  14. LEVOTHYROXINE [Concomitant]

REACTIONS (4)
  - Blister [Recovering/Resolving]
  - Blood test abnormal [Unknown]
  - Nodule [Unknown]
  - Infection [Unknown]
